FAERS Safety Report 7511860-X (Version None)
Quarter: 2011Q2

REPORT INFORMATION
  Report Type: 
  Country: None (occurrence: None)
  Receive Date: 20110531
  Receipt Date: 20110524
  Transmission Date: 20111010
  Serious: Yes (Other)
  Sender: FDA-Public Use
  Company Number: ES-PFIZER INC-2011112794

PATIENT
  Age: 35 Year
  Sex: Male

DRUGS (2)
  1. VFEND [Suspect]
     Indication: CEREBRAL ASPERGILLOSIS
     Dosage: 200 MG, 2X/DAY
     Route: 048
     Dates: start: 20080101, end: 20080901
  2. CASPOFUNGIN [Concomitant]
     Dosage: UNK
     Dates: start: 20080201, end: 20080301

REACTIONS (1)
  - PSEUDOPORPHYRIA [None]
